FAERS Safety Report 8796342 (Version 3)
Quarter: 2013Q2

REPORT INFORMATION
  Report Type: Spontaneous
  Country: DE (occurrence: DE)
  Receive Date: 20120919
  Receipt Date: 20130425
  Transmission Date: 20140414
  Serious: Yes (Death, Other)
  Sender: FDA-Public Use
  Company Number: DE-ALEXION-A201201720

PATIENT
  Age: 24 Year
  Sex: Male

DRUGS (4)
  1. SOLIRIS 300MG [Suspect]
     Indication: HAEMOLYTIC URAEMIC SYNDROME
     Dosage: 900 MG, QW
     Route: 042
     Dates: start: 20120607, end: 20120706
  2. SOLIRIS 300MG [Suspect]
     Dosage: 1200 MG, Q2W
     Route: 042
     Dates: start: 20120718, end: 20120815
  3. MITOMYCIN [Concomitant]
     Indication: NEOPLASM MALIGNANT
  4. ERYTHROPOIETIN [Concomitant]

REACTIONS (2)
  - Death [Fatal]
  - Osmotic demyelination syndrome [Unknown]
